FAERS Safety Report 6211646-2 (Version None)
Quarter: 2009Q2

REPORT INFORMATION
  Report Type: 
  Country: None (occurrence: None)
  Receive Date: 20090602
  Receipt Date: 20090602
  Transmission Date: 20091009
  Serious: Yes (Hospitalization, Other)
  Sender: FDA-Public Use
  Company Number: A0784891A

PATIENT
  Sex: Female
  Weight: 69 kg

DRUGS (10)
  1. ELTROMBOPAG [Suspect]
     Indication: THROMBOCYTOPENIA
     Dosage: 75MG PER DAY
     Route: 048
     Dates: start: 20090505
  2. PEGASYS [Suspect]
     Dosage: 180MCG WEEKLY
     Route: 058
     Dates: start: 20090505
  3. COPEGUS [Suspect]
     Indication: THROMBOCYTOPENIA
     Route: 048
     Dates: start: 20090505
  4. ELTROMBOPAG [Suspect]
     Route: 048
     Dates: start: 20090320, end: 20090505
  5. CALCIUM CARBONATE [Concomitant]
     Indication: ROUTINE HEALTH MAINTENANCE
     Dosage: 500MG PER DAY
     Route: 048
     Dates: start: 20031101, end: 20090513
  6. SODIUM CHLORIDE [Concomitant]
     Indication: DEHYDRATION
     Dosage: 500ML CONTINUOUS
     Route: 042
     Dates: start: 20090514
  7. PANTOCID [Concomitant]
     Indication: PROPHYLAXIS
     Dosage: 40MG PER DAY
     Route: 048
     Dates: start: 20090521
  8. ZINCOVIT [Concomitant]
     Indication: ROUTINE HEALTH MAINTENANCE
     Route: 048
     Dates: start: 20090519
  9. CALCIUM CARBONATE [Concomitant]
     Route: 048
     Dates: start: 20090519
  10. INDERAL [Concomitant]
     Indication: HYPERTENSION
     Dosage: 10MG PER DAY
     Route: 048
     Dates: start: 20090520

REACTIONS (8)
  - ACUTE ABDOMEN [None]
  - COLITIS [None]
  - DEHYDRATION [None]
  - DIARRHOEA [None]
  - NEUTROPENIA [None]
  - PYREXIA [None]
  - RENAL FAILURE [None]
  - URINARY TRACT INFECTION [None]
